FAERS Safety Report 4885774-8 (Version None)
Quarter: 2006Q1

REPORT INFORMATION
  Report Type: 
  Country: None (occurrence: None)
  Receive Date: 20060117
  Receipt Date: 20060105
  Transmission Date: 20060701
  Serious: Yes (Other)
  Sender: FDA-Public Use
  Company Number: 2006005548

PATIENT
  Age: 48 Year
  Sex: Female

DRUGS (5)
  1. NASANYL (NAFARELIN ACETATE) [Suspect]
     Indication: ENDOMETRIOSIS
     Dosage: NASAL
     Route: 045
  2. TRANSAMIN (TRANEXAMIC ACID) [Concomitant]
  3. TETUCUR (FERROPOLIMALER) [Concomitant]
  4. FELTASE (ENZYMES NOS) [Concomitant]
  5. TSUKUSHI AM (ALUMINIUM HYROXIDE GEL, DRIED, CALCIUM CARBONATE, LIPASE, [Concomitant]

REACTIONS (2)
  - CEREBRAL HAEMORRHAGE [None]
  - DEPRESSED LEVEL OF CONSCIOUSNESS [None]
